FAERS Safety Report 5416841-8 (Version None)
Quarter: 2007Q3

REPORT INFORMATION
  Report Type: 
  Country: None (occurrence: None)
  Receive Date: 20070815
  Receipt Date: 20070815
  Transmission Date: 20080115
  Serious: Yes (Hospitalization)
  Sender: FDA-Public Use
  Company Number: None

PATIENT
  Sex: Male
  Weight: 97 kg

DRUGS (3)
  1. IFOSFAMIDE [Suspect]
     Dosage: 4950 MG
  2. DEXAMETHASONE 0.5MG TAB [Suspect]
     Dosage: 60 MG
  3. LEUCOVORIN CALCIUM [Suspect]
     Dosage: 320 MG

REACTIONS (3)
  - DISORIENTATION [None]
  - SPEECH DISORDER [None]
  - SUBDURAL HAEMATOMA [None]
